FAERS Safety Report 6521933-6 (Version None)
Quarter: 2009Q4

REPORT INFORMATION
  Report Type: 
  Country: None (occurrence: None)
  Receive Date: 20091230
  Receipt Date: 20090713
  Transmission Date: 20100525
  Serious: No
  Sender: FDA-Public Use
  Company Number: US-BAYER-200928906NA

PATIENT
  Age: 48 Year
  Sex: Female
  Weight: 77 kg

DRUGS (2)
  1. ULTRAVIST 300 [Suspect]
     Indication: COMPUTERISED TOMOGRAM ABDOMEN
     Dosage: TOTAL DAILY DOSE: 100 ML  UNIT DOSE: 100 ML
     Route: 042
     Dates: start: 20090713, end: 20090713
  2. EZ-CAT [Concomitant]
     Dosage: 2 HRS AND 15 MINS PRIOR TO EXAM
     Route: 048
     Dates: start: 20090713, end: 20090713

REACTIONS (3)
  - PRURITUS [None]
  - SNEEZING [None]
  - URTICARIA [None]
